FAERS Safety Report 10266555 (Version 1)
Quarter: 2014Q2

REPORT INFORMATION
  Report Type: Spontaneous
  Country: US (occurrence: None)
  Receive Date: 20140625
  Receipt Date: 20140625
  Transmission Date: 20141212
  Serious: Yes (Other)
  Sender: FDA-Public Use
  Company Number: None

PATIENT
  Age: 61 Year
  Sex: Female
  Weight: 70.31 kg

DRUGS (3)
  1. FENTANYL TRANSDERMAL SYSTEM [Suspect]
     Indication: SCOLIOSIS
     Dosage: 75MCG EVERY 48 HRS., APPLIED TO A SURFACE, USUALLY THE SKIN?
     Route: 061
     Dates: start: 20140526, end: 20140624
  2. FENTANYL TRANSDERMAL SYSTEM [Suspect]
     Indication: INTERVERTEBRAL DISC DEGENERATION
     Dosage: 75MCG EVERY 48 HRS., APPLIED TO A SURFACE, USUALLY THE SKIN?
     Route: 061
     Dates: start: 20140526, end: 20140624
  3. FENTANYL TRANSDERMAL SYSTEM [Suspect]
     Indication: NERVE COMPRESSION
     Dosage: 75MCG EVERY 48 HRS., APPLIED TO A SURFACE, USUALLY THE SKIN?
     Route: 061
     Dates: start: 20140526, end: 20140624

REACTIONS (14)
  - Fatigue [None]
  - Urinary retention [None]
  - Dyspnoea [None]
  - Hyperhidrosis [None]
  - Feeling cold [None]
  - Application site vesicles [None]
  - Drug ineffective [None]
  - Product substitution issue [None]
  - Somnolence [None]
  - Device adhesion issue [None]
  - Application site pruritus [None]
  - Application site reaction [None]
  - Application site pain [None]
  - Device physical property issue [None]
